FAERS Safety Report 7230999-X (Version None)
Quarter: 2011Q1

REPORT INFORMATION
  Report Type: 
  Country: None (occurrence: None)
  Receive Date: 20110118
  Receipt Date: 20101213
  Transmission Date: 20110831
  Serious: Yes (Death)
  Sender: FDA-Public Use
  Company Number: PHHY2010US90351

PATIENT
  Age: 6 Year
  Sex: Female

DRUGS (3)
  1. TOBI [Suspect]
     Indication: CYSTIC FIBROSIS
     Dosage: 300 MG BID X 28 DAYS
     Dates: start: 20101122
  2. ALBUTEROL [Concomitant]
  3. FLOVENT [Concomitant]

REACTIONS (1)
  - DEATH [None]
